FAERS Safety Report 5403243-3 (Version None)
Quarter: 2007Q3

REPORT INFORMATION
  Report Type: 
  Country: None (occurrence: None)
  Receive Date: 20070801
  Receipt Date: 20070719
  Transmission Date: 20080115
  Serious: Yes (Death, Hospitalization)
  Sender: FDA-Public Use
  Company Number: FR-PFIZER INC-2007061011

PATIENT
  Sex: Male

DRUGS (18)
  1. FLAGYL I.V. [Suspect]
     Dosage: TEXT:500 KIU
     Route: 042
     Dates: start: 20070511, end: 20070524
  2. VFEND [Suspect]
     Indication: BRONCHOPULMONARY ASPERGILLOSIS
     Route: 042
     Dates: start: 20070516, end: 20070519
  3. CYTARABINE [Suspect]
     Indication: ACUTE MYELOID LEUKAEMIA
     Route: 042
     Dates: start: 20070424, end: 20070518
  4. CYTARABINE [Suspect]
     Dosage: DAILY DOSE:40MG
     Route: 037
     Dates: start: 20070427, end: 20070427
  5. CYTARABINE [Suspect]
     Dosage: DAILY DOSE:40MG
     Route: 037
     Dates: start: 20070509, end: 20070509
  6. MITOXANTRONE [Suspect]
     Indication: ACUTE MYELOID LEUKAEMIA
     Route: 042
     Dates: start: 20070425, end: 20070429
  7. AMSIDINE [Suspect]
     Indication: ACUTE MYELOID LEUKAEMIA
     Route: 042
     Dates: start: 20070416, end: 20070518
  8. TAZOCILLINE [Suspect]
     Route: 042
     Dates: start: 20070430, end: 20070520
  9. AMIKLIN [Suspect]
     Route: 042
     Dates: start: 20070520, end: 20070523
  10. CANCIDAS [Suspect]
     Indication: BRONCHOPULMONARY ASPERGILLOSIS
     Route: 042
     Dates: start: 20070519, end: 20070523
  11. FORTUM [Suspect]
     Route: 042
     Dates: start: 20070520, end: 20070524
  12. TIENAM [Suspect]
     Route: 042
     Dates: start: 20070518, end: 20070520
  13. METHOTREXATE [Suspect]
     Indication: ACUTE MYELOID LEUKAEMIA
     Route: 037
     Dates: start: 20070427, end: 20070506
  14. DAUNORUBICIN HCL [Suspect]
     Indication: ACUTE MYELOID LEUKAEMIA
     Route: 042
     Dates: start: 20070424, end: 20070524
  15. HYDREA [Suspect]
     Indication: ACUTE MYELOID LEUKAEMIA
     Route: 048
     Dates: start: 20070423, end: 20070425
  16. PURINETHOL [Suspect]
     Route: 048
     Dates: start: 20070423, end: 20070423
  17. VANCOMYCIN HYDROCHLORIDE [Concomitant]
  18. FUNGIZONE [Concomitant]

REACTIONS (3)
  - ARRHYTHMIA [None]
  - CARDIO-RESPIRATORY ARREST [None]
  - CEREBELLAR SYNDROME [None]
